FAERS Safety Report 6994605-1 (Version None)
Quarter: 2010Q3

REPORT INFORMATION
  Report Type: 
  Country: None (occurrence: None)
  Receive Date: 20100916
  Receipt Date: 20100916
  Transmission Date: 20110219
  Serious: Yes (Hospitalization)
  Sender: FDA-Public Use
  Company Number: None

PATIENT
  Age: 64 Year
  Sex: Female

DRUGS (1)
  1. TRILIPIX [Suspect]
     Indication: HYPERLIPIDAEMIA
     Dosage: TRILIPIX 135 MG DAILY PO
     Route: 048
     Dates: start: 20091001, end: 20091120

REACTIONS (1)
  - PANCREATITIS ACUTE [None]
